FAERS Safety Report 7679604-9 (Version None)
Quarter: 2011Q3

REPORT INFORMATION
  Report Type: 
  Country: None (occurrence: None)
  Receive Date: 20110812
  Receipt Date: 20110802
  Transmission Date: 20111222
  Serious: Yes (Other)
  Sender: FDA-Public Use
  Company Number: JP-ASTRAZENECA-2011SE39130

PATIENT
  Age: 73 Year
  Sex: Male

DRUGS (23)
  1. FRAGMIN [Concomitant]
     Dates: start: 20101213, end: 20101218
  2. NEOPHAGEN [Concomitant]
     Route: 042
     Dates: start: 20101215, end: 20101221
  3. CLIDAMACIN [Concomitant]
     Dates: start: 20101219
  4. MUCODYNE [Concomitant]
     Route: 048
     Dates: end: 20101212
  5. LASIX [Concomitant]
     Route: 048
     Dates: end: 20101212
  6. PANVITAN [Concomitant]
     Route: 048
     Dates: end: 20101218
  7. MAGMITT [Concomitant]
     Dates: start: 20101211, end: 20101212
  8. LAXOBERON [Concomitant]
     Route: 048
     Dates: start: 20101212, end: 20101212
  9. BISOLVON [Concomitant]
     Dates: start: 20101212
  10. OLOPATADINE HCL [Concomitant]
     Route: 048
  11. ADONA [Concomitant]
     Dates: end: 20101219
  12. RIKAVARIN [Concomitant]
     Dates: end: 20101219
  13. PANTOL [Concomitant]
     Dates: start: 20101218, end: 20101221
  14. MEROPENEM [Suspect]
     Route: 042
     Dates: start: 20101215, end: 20101221
  15. OMEPRAZOLE [Concomitant]
     Route: 048
     Dates: end: 20101212
  16. UREPEARL [Concomitant]
  17. NEUTROGIN [Concomitant]
     Dates: start: 20101210, end: 20101214
  18. APHTASOLON [Concomitant]
     Route: 061
     Dates: start: 20101212, end: 20101212
  19. NEUART [Concomitant]
     Route: 042
     Dates: start: 20101213, end: 20101215
  20. MEROPENEM [Suspect]
     Route: 042
     Dates: start: 20101210, end: 20101210
  21. PRIMPERAN TAB [Concomitant]
     Dates: end: 20101219
  22. FUROSEMIDE [Concomitant]
     Dates: start: 20101213
  23. MEROPENEM [Suspect]
     Indication: FEBRILE NEUTROPENIA
     Route: 042
     Dates: start: 20101211, end: 20101214

REACTIONS (2)
  - PNEUMONIA ASPIRATION [None]
  - DISSEMINATED INTRAVASCULAR COAGULATION [None]
